FAERS Safety Report 7453424-2 (Version None)
Quarter: 2011Q2

REPORT INFORMATION
  Report Type: 
  Country: None (occurrence: None)
  Receive Date: 20110502
  Receipt Date: 20110209
  Transmission Date: 20111010
  Serious: No
  Sender: FDA-Public Use
  Company Number: US-ASTRAZENECA-2011SE07578

PATIENT
  Age: 60 Year
  Sex: Male
  Weight: 50.3 kg

DRUGS (5)
  1. NEXIUM [Suspect]
     Indication: GASTROOESOPHAGEAL REFLUX DISEASE
     Route: 048
     Dates: start: 20101201
  2. ALPRAZOLAM [Concomitant]
  3. SOMA [Concomitant]
  4. OMEPRAZOLE [Concomitant]
  5. LORTAB [Concomitant]

REACTIONS (7)
  - NERVOUSNESS [None]
  - COORDINATION ABNORMAL [None]
  - AMNESIA [None]
  - BODY TEMPERATURE DECREASED [None]
  - MUSCULOSKELETAL DISCOMFORT [None]
  - ANXIETY [None]
  - CONFUSIONAL STATE [None]
